FAERS Safety Report 24245986 (Version 1)
Quarter: 2024Q3

REPORT INFORMATION
  Report Type: Spontaneous
  Country: US (occurrence: US)
  Receive Date: 20240824
  Receipt Date: 20240824
  Transmission Date: 20241017
  Serious: No
  Sender: AMGEN
  Company Number: US-AMGEN-USASP2024168356

PATIENT
  Age: 39 Year
  Sex: Male

DRUGS (5)
  1. OTEZLA [Suspect]
     Active Substance: APREMILAST
     Indication: Psoriasis
     Dosage: (10 AND 20 AND30 MG AS DIRECTED)
     Route: 048
     Dates: start: 20240725
  2. CLOBETASOL [Concomitant]
     Active Substance: CLOBETASOL
  3. A-HYDROCORT [Concomitant]
     Active Substance: HYDROCORTISONE SODIUM SUCCINATE
  4. Triamcinolon [Concomitant]
     Dosage: (0.025 PERCENT)
  5. Triamcinolon [Concomitant]
     Dosage: (0.1 PERCENT)

REACTIONS (1)
  - Abdominal discomfort [Recovered/Resolved]

NARRATIVE: CASE EVENT DATE: 20240101
